FAERS Safety Report 5309370-3 (Version None)
Quarter: 2007Q2

REPORT INFORMATION
  Report Type: 
  Country: None (occurrence: None)
  Receive Date: 20070425
  Receipt Date: 20070425
  Transmission Date: 20071010
  Serious: Yes (Other)
  Sender: FDA-Public Use
  Company Number: None

PATIENT
  Sex: Female
  Weight: 95.2554 kg

DRUGS (1)
  1. CRESTOR [Suspect]
     Indication: BLOOD CHOLESTEROL INCREASED
     Dosage: 10MG TAB 1X DAY
     Dates: start: 20070406, end: 20070407

REACTIONS (3)
  - ASTHENIA [None]
  - DIZZINESS [None]
  - IRRITABILITY [None]
